FAERS Safety Report 7609242-5 (Version None)
Quarter: 2011Q3

REPORT INFORMATION
  Report Type: 
  Country: None (occurrence: None)
  Receive Date: 20110714
  Receipt Date: 20110705
  Transmission Date: 20111222
  Serious: Yes (Other)
  Sender: FDA-Public Use
  Company Number: US-ABBOTT-11P-163-0728412-00

PATIENT
  Sex: Female
  Weight: 86.714 kg

DRUGS (10)
  1. ASPIRIN [Concomitant]
     Indication: PRODUCT USED FOR UNKNOWN INDICATION
  2. CLONIDINE [Concomitant]
     Indication: HYPERTENSION
  3. METHOTREXATE [Concomitant]
     Indication: PRODUCT USED FOR UNKNOWN INDICATION
     Dates: start: 20080730, end: 20110613
  4. PREDNISONE [Suspect]
     Indication: ARTHRALGIA
     Dates: start: 20110401
  5. UNKNOWN BLOOD PRESSURE MEDICATION [Concomitant]
     Indication: HYPERTENSION
  6. HUMIRA [Suspect]
     Indication: RHEUMATOID ARTHRITIS
     Dates: start: 20081218, end: 20101001
  7. UNKNOWN BLOOD PRESSURE MEDICATION [Concomitant]
  8. PREDNISONE [Concomitant]
     Indication: PRODUCT USED FOR UNKNOWN INDICATION
     Dosage: 10-20 MG
     Dates: start: 20080730, end: 20110613
  9. HUMIRA [Suspect]
     Indication: RHEUMATOID ARTHRITIS
     Dates: start: 20101001
  10. ENBREL [Concomitant]
     Indication: PRODUCT USED FOR UNKNOWN INDICATION
     Dates: start: 20081006, end: 20081106

REACTIONS (12)
  - INJECTION SITE PAIN [None]
  - MALAISE [None]
  - DYSPEPSIA [None]
  - MYOCARDIAL INFARCTION [None]
  - ARTHRALGIA [None]
  - WEIGHT INCREASED [None]
  - PAIN [None]
  - CARDIOMEGALY [None]
  - ACUTE PULMONARY HISTOPLASMOSIS [None]
  - FEELING ABNORMAL [None]
  - CHEST PAIN [None]
  - BLOOD POTASSIUM DECREASED [None]
